FAERS Safety Report 21289663 (Version 3)
Quarter: 2022Q4

REPORT INFORMATION
  Report Type: Spontaneous
  Country: US (occurrence: None)
  Receive Date: 20220902
  Receipt Date: 20221018
  Transmission Date: 20230112
  Serious: Yes (Hospitalization)
  Sender: FDA-Public Use
  Company Number: 2022A298967

PATIENT
  Age: 55 Year
  Sex: Female

DRUGS (1)
  1. TEZSPIRE [Suspect]
     Active Substance: TEZEPELUMAB-EKKO
     Route: 065
     Dates: start: 20220824

REACTIONS (5)
  - Anaphylactic reaction [Recovering/Resolving]
  - Cough [Unknown]
  - Dyspnoea [Unknown]
  - Chest discomfort [Unknown]
  - Pharyngeal swelling [Unknown]

NARRATIVE: CASE EVENT DATE: 20220824
